FAERS Safety Report 7372278-6 (Version None)
Quarter: 2011Q1

REPORT INFORMATION
  Report Type: 
  Country: None (occurrence: None)
  Receive Date: 20110324
  Receipt Date: 20110316
  Transmission Date: 20110831
  Serious: Yes (Congenital Anomaly)
  Sender: FDA-Public Use
  Company Number: A0918343A

PATIENT
  Sex: Male
  Weight: 3.5 kg

DRUGS (4)
  1. PRENATAL VITAMINS [Concomitant]
  2. PAXIL [Suspect]
     Indication: PRODUCT USED FOR UNKNOWN INDICATION
     Route: 064
     Dates: end: 20020101
  3. LORAZEPAM [Concomitant]
     Dates: end: 20020101
  4. UNKNOWN MEDICATION [Concomitant]
     Dates: end: 20020101

REACTIONS (3)
  - MATERNAL DRUGS AFFECTING FOETUS [None]
  - SPINA BIFIDA OCCULTA [None]
  - DRUG EXPOSURE DURING PREGNANCY [None]
